FAERS Safety Report 9810006 (Version 2)
Quarter: 2015Q4

REPORT INFORMATION
  Report Type: Spontaneous
  Country: US (occurrence: US)
  Receive Date: 20140110
  Receipt Date: 20151228
  Transmission Date: 20160305
  Serious: Yes (Hospitalization)
  Sender: FDA-Public Use
  Company Number: US-SANOFI-AVENTIS-2013SA067824

PATIENT
  Age: 76 Year
  Sex: Male
  Weight: 65 kg

DRUGS (12)
  1. HYDROCHLOROTHIAZIDE. [Concomitant]
     Active Substance: HYDROCHLOROTHIAZIDE
     Dates: start: 2010, end: 2012
  2. ASPIRIN. [Concomitant]
     Active Substance: ASPIRIN
     Dosage: ENTERIC COATED TABLET
  3. STOOL SOFTENER [Concomitant]
     Active Substance: DOCUSATE CALCIUM
  4. PLAVIX [Suspect]
     Active Substance: CLOPIDOGREL BISULFATE
     Indication: STENT PLACEMENT
     Route: 065
     Dates: start: 20090101, end: 20110916
  5. METOPROLOL SUCCINATE. [Concomitant]
     Active Substance: METOPROLOL SUCCINATE
     Route: 048
  6. BENICAR [Concomitant]
     Active Substance: OLMESARTAN MEDOXOMIL
  7. SIMVASTATIN. [Concomitant]
     Active Substance: SIMVASTATIN
     Dosage: STRENGTH: 80MG
     Route: 048
  8. PLAVIX [Suspect]
     Active Substance: CLOPIDOGREL BISULFATE
     Indication: ACUTE CORONARY SYNDROME
     Route: 065
     Dates: start: 20090101, end: 20110916
  9. VITAMIN D [Concomitant]
     Active Substance: CHOLECALCIFEROL
  10. AMLODIPINE BESILATE [Concomitant]
     Active Substance: AMLODIPINE BESYLATE
     Dosage: 5MG
  11. NITROGLYCERINE [Concomitant]
     Active Substance: NITROGLYCERIN
     Dosage: 0.4MG, FREQUENCY: EVERY FIVE MINUTE AS NEEDE
  12. ZANTAC [Concomitant]
     Active Substance: RANITIDINE HYDROCHLORIDE

REACTIONS (2)
  - Gastrointestinal haemorrhage [Unknown]
  - Rectal haemorrhage [Unknown]

NARRATIVE: CASE EVENT DATE: 20110912
